FAERS Safety Report 15961489 (Version 1)
Quarter: 2019Q1

REPORT INFORMATION
  Report Type: Spontaneous
  Country: TW (occurrence: TW)
  Receive Date: 20190214
  Receipt Date: 20190214
  Transmission Date: 20190417
  Serious: Yes (Other)
  Sender: FDA-Public Use
  Company Number: TW-MYLANLABS-2019M1012795

PATIENT
  Age: 41 Year
  Sex: Male

DRUGS (2)
  1. WARFARIN [Suspect]
     Active Substance: WARFARIN
     Indication: ATRIAL FIBRILLATION
  2. WARFARIN [Suspect]
     Active Substance: WARFARIN
     Indication: THROMBOSIS
     Route: 065

REACTIONS (2)
  - Overdose [Unknown]
  - Treatment failure [Unknown]
